FAERS Safety Report 8071390-6 (Version None)
Quarter: 2012Q1

REPORT INFORMATION
  Report Type: 
  Country: None (occurrence: None)
  Receive Date: 20120119
  Receipt Date: 20120103
  Transmission Date: 20120608
  Serious: Yes (Hospitalization, Disabling, Other)
  Sender: FDA-Public Use
  Company Number: ABR_00337_2012

PATIENT
  Sex: Female

DRUGS (1)
  1. ERYTHROMYCIN [Suspect]
     Indication: SINUSITIS
     Dosage: UNK ORAL
     Route: 048
     Dates: start: 19980301, end: 19980306

REACTIONS (15)
  - DYSPNOEA [None]
  - PALPITATIONS [None]
  - FAECES DISCOLOURED [None]
  - HEART RATE INCREASED [None]
  - PAIN [None]
  - ELECTROCARDIOGRAM QT PROLONGED [None]
  - DIZZINESS [None]
  - NOCTURNAL DYSPNOEA [None]
  - BRAIN INJURY [None]
  - NAUSEA [None]
  - HEART RATE IRREGULAR [None]
  - VENTRICULAR EXTRASYSTOLES [None]
  - MYOCARDITIS INFECTIOUS [None]
  - DYSPNOEA EXERTIONAL [None]
  - CEREBRAL ISCHAEMIA [None]
